FAERS Safety Report 5123436-2 (Version None)
Quarter: 2006Q4

REPORT INFORMATION
  Report Type: 
  Country: None (occurrence: None)
  Receive Date: 20061005
  Receipt Date: 20060922
  Transmission Date: 20070319
  Serious: Yes (Death, Other)
  Sender: FDA-Public Use
  Company Number: 2006115125

PATIENT
  Age: 68 Year
  Sex: Male

DRUGS (6)
  1. ZYVOX [Suspect]
     Indication: STAPHYLOCOCCAL INFECTION
     Dosage: 1200 MG, INTRAVENOUS
     Route: 042
     Dates: start: 20060908, end: 20060911
  2. CEFTAZIDIME (CEFTAZIDIME) [Concomitant]
  3. FLUCONAZOLE [Concomitant]
  4. FOY (GABEXATE MESILATE) [Concomitant]
  5. FINIBAX (DORIPENEM) [Concomitant]
  6. VANCOMYCIN HYDROCHLORIDE [Concomitant]

REACTIONS (3)
  - DISSEMINATED INTRAVASCULAR COAGULATION [None]
  - PNEUMONIA STAPHYLOCOCCAL [None]
  - SERRATIA SEPSIS [None]
